FAERS Safety Report 6762627-1 (Version None)
Quarter: 2010Q2

REPORT INFORMATION
  Report Type: 
  Country: None (occurrence: None)
  Receive Date: 20100609
  Receipt Date: 20100531
  Transmission Date: 20101027
  Serious: Yes (Other)
  Sender: FDA-Public Use
  Company Number: GXKR2010CH06111

PATIENT
  Sex: Male

DRUGS (2)
  1. CARBOPLATIN [Suspect]
     Indication: SQUAMOUS CELL CARCINOMA
     Dosage: 600 MG (TWO WEEKLY CYCLES)
     Route: 042
  2. TAXOL [Suspect]
     Indication: SQUAMOUS CELL CARCINOMA
     Dosage: ST CYCLE: 138 MG; 2ND CYCLE: 160 MG (TWO WEEKLY CYCLES)
     Route: 042

REACTIONS (1)
  - PRIAPISM [None]
